FAERS Safety Report 5305963-8 (Version None)
Quarter: 2007Q2

REPORT INFORMATION
  Report Type: 
  Country: None (occurrence: None)
  Receive Date: 20070424
  Receipt Date: 20070410
  Transmission Date: 20071010
  Serious: Yes (Hospitalization)
  Sender: FDA-Public Use
  Company Number: CG-MERCK-0609USA04319

PATIENT
  Age: 16 Year
  Sex: Male
  Weight: 39 kg

DRUGS (1)
  1. STROMECTOL [Suspect]
     Route: 048
     Dates: start: 20060209, end: 20060209

REACTIONS (4)
  - ENCEPHALOPATHY [None]
  - HEADACHE [None]
  - PRURITUS [None]
  - PYREXIA [None]
